FAERS Safety Report 11037138 (Version 3)
Quarter: 2015Q2

REPORT INFORMATION
  Report Type: Report from Study
  Country: US (occurrence: US)
  Receive Date: 20150416
  Receipt Date: 20150616
  Transmission Date: 20150821
  Serious: Yes (Other)
  Sender: FDA-Public Use
  Company Number: US-BIOGENIDEC-2015BI047076

PATIENT
  Age: 65 Year
  Sex: Female

DRUGS (3)
  1. TECFIDERA [Suspect]
     Active Substance: DIMETHYL FUMARATE
     Indication: MULTIPLE SCLEROSIS
     Route: 048
     Dates: end: 201501
  2. TECFIDERA [Suspect]
     Active Substance: DIMETHYL FUMARATE
     Indication: MULTIPLE SCLEROSIS
     Route: 048
     Dates: start: 201407
  3. TECFIDERA [Suspect]
     Active Substance: DIMETHYL FUMARATE
     Indication: MULTIPLE SCLEROSIS
     Route: 048
     Dates: start: 20140901, end: 20141201

REACTIONS (9)
  - Stress [Unknown]
  - Weight decreased [Recovered/Resolved]
  - Weight increased [Unknown]
  - Progressive relapsing multiple sclerosis [Recovered/Resolved]
  - Lymphocyte count decreased [Recovered/Resolved]
  - White blood cell disorder [Unknown]
  - Laboratory test abnormal [Unknown]
  - White blood cell count increased [Unknown]
  - Adverse drug reaction [Unknown]

NARRATIVE: CASE EVENT DATE: 201409
